FAERS Safety Report 10515042 (Version 1)
Quarter: 2014Q4

REPORT INFORMATION
  Report Type: Other
  Country: IT (occurrence: IT)
  Receive Date: 20141013
  Receipt Date: 20141013
  Transmission Date: 20150528
  Serious: Yes (Other)
  Sender: FDA-Public Use
  Company Number: IT-LUPIN PHARMACEUTICALS INC.-2014-01664

PATIENT
  Age: 43 Year
  Sex: Female

DRUGS (4)
  1. QUETIAPINE [Suspect]
     Active Substance: QUETIAPINE
     Indication: DEPRESSION
  2. PAROXETINE [Suspect]
     Active Substance: PAROXETINE\PAROXETINE HYDROCHLORIDE
     Indication: DEPRESSION
  3. QUETIAPINE [Suspect]
     Active Substance: QUETIAPINE
     Indication: PANIC DISORDER WITH AGORAPHOBIA
     Route: 065
  4. PAROXETINE [Suspect]
     Active Substance: PAROXETINE\PAROXETINE HYDROCHLORIDE
     Indication: PANIC DISORDER WITH AGORAPHOBIA
     Dosage: 60 MG
     Route: 065

REACTIONS (6)
  - Erosive oesophagitis [Recovered/Resolved]
  - Disturbance in attention [Recovered/Resolved]
  - Musculoskeletal stiffness [Recovered/Resolved]
  - Withdrawal syndrome [Recovered/Resolved]
  - Anxiety [Recovered/Resolved]
  - Depersonalisation [Recovered/Resolved]
